FAERS Safety Report 16211068 (Version 1)
Quarter: 2019Q2

REPORT INFORMATION
  Report Type: Spontaneous
  Country: US (occurrence: US)
  Receive Date: 20190418
  Receipt Date: 20190418
  Transmission Date: 20190711
  Serious: No
  Sender: FDA-Public Use
  Company Number: US-BIOGEN-2017BI00411019

PATIENT
  Age: 44 Year
  Sex: Female

DRUGS (3)
  1. TECFIDERA [Suspect]
     Active Substance: DIMETHYL FUMARATE
     Route: 048
     Dates: start: 20170519
  2. TECFIDERA [Suspect]
     Active Substance: DIMETHYL FUMARATE
     Indication: MULTIPLE SCLEROSIS
     Route: 048
     Dates: start: 20170511, end: 20170518
  3. TECFIDERA [Suspect]
     Active Substance: DIMETHYL FUMARATE
     Route: 065
     Dates: start: 20170511, end: 20170522

REACTIONS (12)
  - Muscle spasms [Not Recovered/Not Resolved]
  - Hypophagia [Recovered/Resolved]
  - Gastrointestinal disorder [Not Recovered/Not Resolved]
  - Influenza like illness [Recovered/Resolved]
  - Feeling abnormal [Recovered/Resolved]
  - Flushing [Recovered/Resolved]
  - Vomiting [Not Recovered/Not Resolved]
  - Malaise [Not Recovered/Not Resolved]
  - Decreased activity [Recovered/Resolved]
  - Dizziness [Recovered/Resolved]
  - Fluid intake reduced [Recovered/Resolved]
  - Diarrhoea [Not Recovered/Not Resolved]

NARRATIVE: CASE EVENT DATE: 20170512
